FAERS Safety Report 7688840-7 (Version None)
Quarter: 2011Q3

REPORT INFORMATION
  Report Type: 
  Country: None (occurrence: None)
  Receive Date: 20110817
  Receipt Date: 20110808
  Transmission Date: 20111222
  Serious: Yes (Hospitalization)
  Sender: FDA-Public Use
  Company Number: PHHY2011IN72409

PATIENT
  Age: 38 Year
  Sex: Male

DRUGS (4)
  1. CARBAMAZEPINE [Suspect]
     Indication: COMPLEX PARTIAL SEIZURES
     Dosage: 100 MG, BID
  2. NON-DRUG: AYURVEDIC THERAPY [Suspect]
     Dosage: UNK UKN, UNK
  3. LEVETIRACETAM [Concomitant]
     Dosage: UNK UKN, UNK
  4. CARBAMAZEPINE [Suspect]
     Dosage: 300 MG, BID

REACTIONS (24)
  - SKIN EXFOLIATION [None]
  - NIKOLSKY'S SIGN [None]
  - CONJUNCTIVAL HYPERAEMIA [None]
  - HYPOTENSION [None]
  - GENITAL LESION [None]
  - BLISTER [None]
  - ORAL DISORDER [None]
  - RASH ERYTHEMATOUS [None]
  - MADAROSIS [None]
  - PYREXIA [None]
  - EPIDERMAL NECROSIS [None]
  - DYSPNOEA [None]
  - HYPERKALAEMIA [None]
  - EYE DISCHARGE [None]
  - KERATITIS [None]
  - ALANINE AMINOTRANSFERASE INCREASED [None]
  - STAPHYLOCOCCUS TEST POSITIVE [None]
  - TOXIC EPIDERMAL NECROLYSIS [None]
  - HEADACHE [None]
  - CORNEAL LESION [None]
  - TACHYPNOEA [None]
  - ASPARTATE AMINOTRANSFERASE INCREASED [None]
  - HYPONATRAEMIA [None]
  - HAEMOGLOBIN DECREASED [None]
